FAERS Safety Report 13682024 (Version 2)
Quarter: 2017Q3

REPORT INFORMATION
  Report Type: Spontaneous
  Country: TW (occurrence: TW)
  Receive Date: 20170623
  Receipt Date: 20170707
  Transmission Date: 20171127
  Serious: Yes (Death, Hospitalization)
  Sender: FDA-Public Use
  Company Number: TW-B.I. PHARMACEUTICALS,INC./RIDGEFIELD-2017-BI-034482

PATIENT
  Age: 84 Year
  Sex: Female
  Weight: 44 kg

DRUGS (3)
  1. PRADAXA [Suspect]
     Active Substance: DABIGATRAN ETEXILATE MESYLATE
     Indication: ARRHYTHMIA PROPHYLAXIS
     Route: 065
     Dates: start: 20170110, end: 20170310
  2. PREDNISOLONE. [Concomitant]
     Active Substance: PREDNISOLONE
     Indication: PRODUCT USED FOR UNKNOWN INDICATION
     Route: 065
     Dates: start: 20160721
  3. PREDNISOLONE. [Concomitant]
     Active Substance: PREDNISOLONE
     Route: 065
     Dates: start: 20170516

REACTIONS (6)
  - Pneumonia [Unknown]
  - Haemorrhage [Fatal]
  - Gastrointestinal haemorrhage [Fatal]
  - Haemoptysis [Fatal]
  - Blood urine present [Fatal]
  - Shock [Fatal]

NARRATIVE: CASE EVENT DATE: 20170611
